FAERS Safety Report 5729673-8 (Version None)
Quarter: 2008Q2

REPORT INFORMATION
  Report Type: 
  Country: None (occurrence: None)
  Receive Date: 20080506
  Receipt Date: 20080501
  Transmission Date: 20081010
  Serious: Yes (Hospitalization)
  Sender: FDA-Public Use
  Company Number: IT-BOEHRINGER INGELHEIM GMBH, GERMANY-2008-BP-06932RO

PATIENT
  Age: 35 Day
  Sex: Male

DRUGS (3)
  1. ZIDOVUDINE [Suspect]
     Indication: PROPHYLAXIS
     Route: 048
  2. RED CELL TRANSFUSION [Concomitant]
  3. INTRAVENOUS ANTIBIOTICS [Concomitant]
     Route: 042

REACTIONS (4)
  - ANAEMIA [None]
  - OVERDOSE [None]
  - SEPSIS [None]
  - STAPHYLOCOCCAL INFECTION [None]
